FAERS Safety Report 6522207-X (Version None)
Quarter: 2009Q4

REPORT INFORMATION
  Report Type: 
  Country: None (occurrence: None)
  Receive Date: 20091229
  Receipt Date: 20091229
  Transmission Date: 20100525
  Serious: Yes (Hospitalization)
  Sender: FDA-Public Use
  Company Number: None

PATIENT
  Age: 24 Year
  Sex: Female
  Weight: 49 kg

DRUGS (9)
  1. TOBRAMYCIN [Suspect]
     Indication: CONDITION AGGRAVATED
     Dosage: 450 IV DAILY
     Route: 042
     Dates: start: 20091103, end: 20091106
  2. BISACODYL [Concomitant]
  3. DOCUSATE [Concomitant]
  4. HYDROMORPHONE [Concomitant]
  5. LANSOPRAZOLE [Concomitant]
  6. LEVOFLOXACIN [Concomitant]
  7. ONDANSETRON [Concomitant]
  8. OSELTAMIVIR [Concomitant]
  9. VANCOMYCIN [Concomitant]

REACTIONS (1)
  - BLOOD CREATININE INCREASED [None]
